FAERS Safety Report 4314545-6 (Version None)
Quarter: 2004Q1

REPORT INFORMATION
  Report Type: 
  Country: None (occurrence: None)
  Receive Date: 20040309
  Receipt Date: 20040302
  Transmission Date: 20041129
  Serious: Yes (Disabling)
  Sender: FDA-Public Use
  Company Number: WAES 0403USA00228

PATIENT
  Age: 82 Year
  Sex: Female

DRUGS (5)
  1. AMILORIDE [Concomitant]
  2. ZETIA [Suspect]
     Indication: HYPERCHOLESTEROLAEMIA
     Route: 048
  3. ZETIA [Suspect]
     Route: 048
  4. SYNTHROID [Concomitant]
  5. PROPRANOLOL HYDROCHLORIDE [Concomitant]

REACTIONS (8)
  - BLOOD PRESSURE DECREASED [None]
  - EYE DISCHARGE [None]
  - EYE INFLAMMATION [None]
  - EYE IRRITATION [None]
  - EYE PRURITUS [None]
  - EYE REDNESS [None]
  - SINUS DISORDER [None]
  - THROMBOSIS [None]
